FAERS Safety Report 26172809 (Version 1)
Quarter: 2025Q4

REPORT INFORMATION
  Report Type: Spontaneous
  Country: KR (occurrence: KR)
  Receive Date: 20251218
  Receipt Date: 20251218
  Transmission Date: 20260118
  Serious: Yes (Other)
  Sender: ZHEJIANG XIANJU PHARMACEUTICAL CO., LTD.
  Company Number: KR-Hisun Pharmaceuticals USA Inc.-000986

PATIENT
  Age: 54 Year
  Sex: Female

DRUGS (4)
  1. PREDNISOLONE [Suspect]
     Active Substance: PREDNISOLONE
     Indication: Breast cancer metastatic
  2. CYCLOPHOSPHAMIDE [Suspect]
     Active Substance: CYCLOPHOSPHAMIDE
     Indication: Breast cancer metastatic
  3. VINCRISTINE [Suspect]
     Active Substance: VINCRISTINE
     Indication: Breast cancer metastatic
  4. RITUXIMAB [Suspect]
     Active Substance: RITUXIMAB
     Indication: Breast cancer metastatic

REACTIONS (1)
  - Cytopenia [Recovered/Resolved]
